FAERS Safety Report 5194004-1 (Version None)
Quarter: 2006Q4

REPORT INFORMATION
  Report Type: 
  Country: None (occurrence: None)
  Receive Date: 20061228
  Receipt Date: 20061023
  Transmission Date: 20070319
  Serious: No
  Sender: FDA-Public Use
  Company Number: US-GLAXOSMITHKLINE-A0624652A

PATIENT
  Age: 8 Year
  Sex: Male

DRUGS (1)
  1. FLOVENT [Suspect]
     Indication: ASTHMA PROPHYLAXIS
     Dosage: 1PUFF VARIABLE DOSE
     Route: 055
     Dates: start: 20060101, end: 20060101

REACTIONS (5)
  - ANXIETY [None]
  - CRYING [None]
  - FEAR [None]
  - PARANOIA [None]
  - PERSONALITY CHANGE [None]
